FAERS Safety Report 5091519-1 (Version None)
Quarter: 2006Q3

REPORT INFORMATION
  Report Type: 
  Country: None (occurrence: None)
  Receive Date: 20060824
  Receipt Date: 20060810
  Transmission Date: 20061208
  Serious: Yes (Death, Hospitalization)
  Sender: FDA-Public Use
  Company Number: 163-20785-06060533

PATIENT
  Age: 83 Year
  Sex: Female

DRUGS (4)
  1. THALOMID [Suspect]
     Indication: MULTIPLE MYELOMA
     Dosage: 200 MG, 4 IN 1D, ORAL
     Route: 048
     Dates: start: 20011010, end: 20060601
  2. GLIPIZIDE [Concomitant]
  3. ALDACTONE [Concomitant]
  4. MICARDIS [Concomitant]

REACTIONS (7)
  - ADHESION [None]
  - GASTROENTERITIS VIRAL [None]
  - GASTROINTESTINAL DISORDER [None]
  - NEUROPATHY PERIPHERAL [None]
  - RENAL FAILURE ACUTE [None]
  - SEPSIS SYNDROME [None]
  - SMALL INTESTINAL OBSTRUCTION [None]
